FAERS Safety Report 10203594 (Version 5)
Quarter: 2014Q4

REPORT INFORMATION
  Report Type: Spontaneous
  Country: US (occurrence: US)
  Receive Date: 20140529
  Receipt Date: 20141229
  Transmission Date: 20150528
  Serious: No
  Sender: FDA-Public Use
  Company Number: US-PFIZER INC-2014136691

PATIENT
  Age: 68 Year
  Sex: Male

DRUGS (10)
  1. VITAMIN B COMPLEX WITH C [Concomitant]
     Active Substance: ASCORBIC ACID\CALCIUM PANTOTHENATE\CYANOCOBALAMIN\NIACINAMIDE\PYRIDOXINE HYDROCHLORIDE\RIBOFLAVIN\THIAMINE MONONITRATE
     Dosage: ONCE A DAY
  2. NIFEDIPINE. [Concomitant]
     Active Substance: NIFEDIPINE
     Dosage: 30 MG, 2X/DAY
     Route: 048
  3. GLUTAMINE [Concomitant]
     Active Substance: GLUTAMINE
     Indication: GASTROINTESTINAL DISORDER
     Dosage: 10 G, (1 TABLESPOON) 2-3 TIMES A DAY MIXED TO WATER OR JUICE
     Route: 048
  4. FINASTERIDE. [Concomitant]
     Active Substance: FINASTERIDE
     Dosage: 5 MG, 1X/DAY
     Route: 048
  5. EPA MAX [Concomitant]
     Dosage: 2X/DAY X 30 DAYS
  6. MELATONIN [Concomitant]
     Active Substance: MELATONIN
     Dosage: 20 MG, 1X/DAY (AT BEDTIME) X 30 DAYS
  7. FLOMAX [Concomitant]
     Active Substance: TAMSULOSIN HYDROCHLORIDE
     Dosage: 0.4 MG, ALTERNATE DAY
     Route: 048
  8. SUTENT [Suspect]
     Active Substance: SUNITINIB MALATE
     Indication: METASTATIC RENAL CELL CARCINOMA
     Dosage: 25 MG, 1X/DAY
     Route: 048
     Dates: start: 201105, end: 201409
  9. VITAMIN D3 [Concomitant]
     Active Substance: CHOLECALCIFEROL
     Dosage: 2000 IU, 1X/DAY
  10. QUINAPRIL [Concomitant]
     Active Substance: QUINAPRIL\QUINAPRIL HYDROCHLORIDE
     Dosage: 20 MG, 1X/DAY
     Route: 048

REACTIONS (5)
  - Disease progression [Unknown]
  - Dysgeusia [Recovered/Resolved]
  - Metastatic renal cell carcinoma [Unknown]
  - Stomatitis [Recovered/Resolved]
  - Fatigue [Recovered/Resolved]
